FAERS Safety Report 9705969 (Version 2)
Quarter: 2013Q4

REPORT INFORMATION
  Report Type: Spontaneous
  Country: FR (occurrence: FR)
  Receive Date: 20131122
  Receipt Date: 20131219
  Transmission Date: 20140711
  Serious: Yes (Hospitalization)
  Sender: FDA-Public Use
  Company Number: FR-GLAXOSMITHKLINE-B0946592A

PATIENT
  Age: 33 Year
  Sex: Male

DRUGS (7)
  1. WELLVONE [Suspect]
     Indication: PNEUMOCYSTIS JIROVECII INFECTION
     Dosage: 750MG TWICE PER DAY
     Route: 048
     Dates: start: 20130919, end: 20130923
  2. DEXAMBUTOL [Suspect]
     Indication: EXTRAPULMONARY TUBERCULOSIS
     Dosage: 1G PER DAY
     Route: 048
     Dates: start: 20130920, end: 20130923
  3. RIFATER [Concomitant]
     Indication: EXTRAPULMONARY TUBERCULOSIS
     Route: 048
     Dates: start: 20130920
  4. TRIATEC [Concomitant]
     Indication: NEPHROPROTECTIVE THERAPY
     Dosage: 1.25MG PER DAY
     Route: 048
     Dates: start: 20130913
  5. ARANESP [Concomitant]
     Indication: PRODUCT USED FOR UNKNOWN INDICATION
     Dosage: 20MCG WEEKLY
     Route: 058
  6. PENTACARINAT [Concomitant]
     Indication: ANTIFUNGAL PROPHYLAXIS
     Route: 055
     Dates: start: 20130830
  7. BECILAN [Concomitant]
     Indication: PRODUCT USED FOR UNKNOWN INDICATION
     Route: 048
     Dates: start: 20130920

REACTIONS (2)
  - Rash morbilliform [Recovered/Resolved]
  - Pruritus [Recovered/Resolved]
